FAERS Safety Report 21141442 (Version 1)
Quarter: 2022Q3

REPORT INFORMATION
  Report Type: Spontaneous
  Country: US (occurrence: None)
  Receive Date: 20220727
  Receipt Date: 20220727
  Transmission Date: 20221026
  Serious: Yes (Other)
  Sender: FDA-Public Use
  Company Number: None

PATIENT
  Age: 64 Year
  Sex: Male
  Weight: 139.5 kg

DRUGS (1)
  1. LOVENOX [Suspect]
     Active Substance: ENOXAPARIN SODIUM
     Dosage: OTHER QUANTITY : 1 INJECTION(S);?
     Route: 058
     Dates: start: 20220726, end: 20220726

REACTIONS (5)
  - Agitation [None]
  - Tremor [None]
  - Tremor [None]
  - Energy increased [None]
  - Impaired driving ability [None]

NARRATIVE: CASE EVENT DATE: 20220726
